FAERS Safety Report 14655169 (Version 2)
Quarter: 2018Q2

REPORT INFORMATION
  Report Type: Spontaneous
  Country: US (occurrence: US)
  Receive Date: 20180319
  Receipt Date: 20180508
  Transmission Date: 20180711
  Serious: No
  Sender: FDA-Public Use
  Company Number: US-CELLTRION INC.-2017US014808

PATIENT

DRUGS (2)
  1. INFLECTRA [Suspect]
     Active Substance: INFLIXIMAB-DYYB
     Indication: IRIDOCYCLITIS
     Dosage: 5 DF (VIALS)  AT 0, 2 WEEKS THEN MONTHLY
     Route: 065
  2. INFLECTRA [Suspect]
     Active Substance: INFLIXIMAB-DYYB
     Indication: SARCOIDOSIS
     Dosage: 5 MG/KG AT 0, 2, 6 WEEKS THEN MONTHLY
     Route: 065

REACTIONS (1)
  - Off label use [Unknown]
